FAERS Safety Report 4960102-8 (Version None)
Quarter: 2006Q1

REPORT INFORMATION
  Report Type: 
  Country: None (occurrence: None)
  Receive Date: 20060328
  Receipt Date: 20060310
  Transmission Date: 20060701
  Serious: Yes (Hospitalization)
  Sender: FDA-Public Use
  Company Number: 222995

PATIENT
  Age: 82 Year
  Sex: Male

DRUGS (7)
  1. RITUXAN [Suspect]
     Indication: DIFFUSE LARGE B-CELL LYMPHOMA
  2. IBRITUMOMAB TIUXETAN                (IBRITUMOMAB TIUXETAN) [Suspect]
     Indication: DIFFUSE LARGE B-CELL LYMPHOMA
  3. CYTOXAN [Suspect]
     Indication: DIFFUSE LARGE B-CELL LYMPHOMA
     Dosage: 750 MG/M2
     Dates: start: 20060222
  4. ADRIAMYCIN PFS [Suspect]
     Indication: DIFFUSE LARGE B-CELL LYMPHOMA
     Dosage: 50 MG/M2
     Dates: start: 20060222
  5. VINCRISTINE [Suspect]
     Indication: DIFFUSE LARGE B-CELL LYMPHOMA
  6. PREDNISONE TAB [Suspect]
     Indication: DIFFUSE LARGE B-CELL LYMPHOMA
     Dates: start: 20060222, end: 20060226
  7. NEULASTA [Suspect]
     Indication: DIFFUSE LARGE B-CELL LYMPHOMA
     Dosage: 6 MG
     Dates: start: 20060223

REACTIONS (3)
  - COMPUTERISED TOMOGRAM ABNORMAL [None]
  - FEBRILE NEUTROPENIA [None]
  - SINUS DISORDER [None]
